FAERS Safety Report 10409472 (Version 2)
Quarter: 2014Q3

REPORT INFORMATION
  Report Type: Spontaneous
  Country: US (occurrence: US)
  Receive Date: 20140826
  Receipt Date: 20140826
  Transmission Date: 20150326
  Serious: No
  Sender: FDA-Public Use
  Company Number: US-BAUSCH-SYM-2013-12344

PATIENT
  Age: 83 Year
  Sex: Male

DRUGS (1)
  1. ACYCLOVIR 5% [Suspect]
     Active Substance: ACYCLOVIR
     Indication: HERPES ZOSTER
     Route: 061
     Dates: start: 201310

REACTIONS (2)
  - Rash [Unknown]
  - Product physical issue [Unknown]
